FAERS Safety Report 18317342 (Version 5)
Quarter: 2021Q1

REPORT INFORMATION
  Report Type: Report from Study
  Country: NL (occurrence: NL)
  Receive Date: 20200928
  Receipt Date: 20210219
  Transmission Date: 20210419
  Serious: Yes (Hospitalization)
  Sender: FDA-Public Use
  Company Number: NL-BAXTER-2020BAX019327

PATIENT
  Age: 62 Year
  Sex: Female
  Weight: 79.9 kg

DRUGS (16)
  1. FLUDARABINE [Suspect]
     Active Substance: FLUDARABINE PHOSPHATE
     Indication: B-CELL LYMPHOMA
     Dosage: INJECTION FOR INFUSION, LYMPHODEPLETING CHEMOTHERAPY
     Route: 042
     Dates: start: 20200801, end: 20200803
  2. RITUXIMAB. [Concomitant]
     Active Substance: RITUXIMAB
     Indication: B-CELL LYMPHOMA
     Dosage: 2 TIMES
     Route: 042
     Dates: start: 20200710, end: 20200724
  3. PERINDOPRIL [Concomitant]
     Active Substance: PERINDOPRIL
     Indication: HYPERTENSION
     Route: 065
  4. LEVETIRACETAM. [Concomitant]
     Active Substance: LEVETIRACETAM
     Indication: PRODUCT USED FOR UNKNOWN INDICATION
     Dosage: TABLETS
     Route: 048
     Dates: start: 20200806, end: 20200817
  5. LEVETIRACETAM. [Concomitant]
     Active Substance: LEVETIRACETAM
     Dosage: TABLETS
     Route: 048
     Dates: start: 20200817, end: 20200821
  6. RIVAROXABAN [Concomitant]
     Active Substance: RIVAROXABAN
     Indication: PRODUCT USED FOR UNKNOWN INDICATION
     Dosage: TABLETS
     Route: 048
     Dates: start: 20200807, end: 20200817
  7. ENDOXAN I.V., POEDER VOOR OPLOSSING VOOR INJECTIE (LYOFILISAAT) 2000 M [Suspect]
     Active Substance: CYCLOPHOSPHAMIDE
     Indication: B-CELL LYMPHOMA
     Dosage: INJECTION FOR INFUSION, LYMPHODEPLETING CHEMOTHERAPY
     Route: 042
     Dates: start: 20200801, end: 20200803
  8. HEPARIN [Concomitant]
     Active Substance: HEPARIN SODIUM
     Indication: THROMBOSIS PROPHYLAXIS
     Route: 065
     Dates: start: 20200731, end: 20200817
  9. VALACYCLOVIR [Concomitant]
     Active Substance: VALACYCLOVIR HYDROCHLORIDE
     Indication: PRODUCT USED FOR UNKNOWN INDICATION
     Dosage: TABLETS
     Route: 048
     Dates: start: 20200806, end: 20200817
  10. DEXAMETHASONE. [Concomitant]
     Active Substance: DEXAMETHASONE
     Indication: B-CELL LYMPHOMA
     Dosage: CYCLE 1 (D1?4), CYCLE 2 (D2)
     Route: 048
     Dates: start: 20200703, end: 20200724
  11. CIPROFLOXACIN. [Concomitant]
     Active Substance: CIPROFLOXACIN
     Indication: PRODUCT USED FOR UNKNOWN INDICATION
     Dosage: TABLETS
     Route: 048
     Dates: start: 20200808, end: 20200817
  12. CISPLATIN. [Concomitant]
     Active Substance: CISPLATIN
     Indication: B-CELL LYMPHOMA
     Dosage: 2 TIMES
     Route: 042
     Dates: start: 20200703, end: 20200724
  13. FLUCONAZOLE. [Concomitant]
     Active Substance: FLUCONAZOLE
     Indication: PRODUCT USED FOR UNKNOWN INDICATION
     Route: 048
     Dates: start: 20200808, end: 20200817
  14. LANOXIN [Concomitant]
     Active Substance: DIGOXIN
     Indication: ATRIAL FIBRILLATION
     Route: 065
  15. GEMCITABINE. [Concomitant]
     Active Substance: GEMCITABINE
     Indication: B-CELL LYMPHOMA
     Dosage: 3 TIMES
     Route: 042
     Dates: start: 20200703, end: 20200731
  16. SOTALOL. [Concomitant]
     Active Substance: SOTALOL
     Indication: ATRIAL FIBRILLATION
     Route: 065

REACTIONS (4)
  - Fall [Recovered/Resolved]
  - Febrile neutropenia [Recovered/Resolved]
  - Neutropenia [Recovered/Resolved with Sequelae]
  - Cytokine release syndrome [Recovered/Resolved]

NARRATIVE: CASE EVENT DATE: 20200807
